FAERS Safety Report 5399442-X (Version None)
Quarter: 2007Q3

REPORT INFORMATION
  Report Type: 
  Country: None (occurrence: None)
  Receive Date: 20070727
  Receipt Date: 20070726
  Transmission Date: 20080115
  Serious: Yes (Death, Other)
  Sender: FDA-Public Use
  Company Number: PHBS2006JP11647

PATIENT
  Age: 62 Year
  Sex: Female

DRUGS (5)
  1. LOXONIN [Suspect]
     Dosage: 60 MG/DAY
     Route: 048
     Dates: start: 20060718, end: 20060719
  2. MUCOSTA [Suspect]
     Dosage: 100 MG/DAY
     Route: 048
     Dates: start: 20060718, end: 20060719
  3. BIOFERMIN [Suspect]
     Route: 048
     Dates: start: 20060718, end: 20060719
  4. DIOVAN [Suspect]
     Dosage: UNK, UNK
     Route: 048
     Dates: start: 20030101
  5. DIOVAN [Suspect]
     Dosage: 40 MG/DAY
     Route: 048
     Dates: start: 20060710, end: 20060719

REACTIONS (33)
  - ALANINE AMINOTRANSFERASE INCREASED [None]
  - ASPARTATE AMINOTRANSFERASE INCREASED [None]
  - BLOOD ALKALINE PHOSPHATASE INCREASED [None]
  - BLOOD CREATINE PHOSPHOKINASE INCREASED [None]
  - BLOOD CREATININE INCREASED [None]
  - BLOOD LACTATE DEHYDROGENASE INCREASED [None]
  - BLOOD PRESSURE DECREASED [None]
  - BLOOD PRESSURE INCREASED [None]
  - BLOOD UREA INCREASED [None]
  - C-REACTIVE PROTEIN INCREASED [None]
  - DEHYDRATION [None]
  - DEPRESSED LEVEL OF CONSCIOUSNESS [None]
  - DIALYSIS [None]
  - DISSEMINATED INTRAVASCULAR COAGULATION [None]
  - GAIT DISTURBANCE [None]
  - HEART RATE INCREASED [None]
  - HYPERTHERMIA MALIGNANT [None]
  - HYPOKINESIA [None]
  - INCONTINENCE [None]
  - INTERNATIONAL NORMALISED RATIO INCREASED [None]
  - INTUBATION [None]
  - METABOLIC ACIDOSIS [None]
  - MULTI-ORGAN FAILURE [None]
  - MUSCULOSKELETAL STIFFNESS [None]
  - MYOGLOBINURIA [None]
  - OLIGURIA [None]
  - PLATELET COUNT DECREASED [None]
  - PO2 DECREASED [None]
  - PYREXIA [None]
  - RENAL FAILURE ACUTE [None]
  - RESPIRATORY RATE DECREASED [None]
  - RHABDOMYOLYSIS [None]
  - WHITE BLOOD CELL COUNT INCREASED [None]
